FAERS Safety Report 4585874-6 (Version None)
Quarter: 2005Q1

REPORT INFORMATION
  Report Type: 
  Country: None (occurrence: None)
  Receive Date: 20050214
  Receipt Date: 20050203
  Transmission Date: 20050727
  Serious: Yes (Death)
  Sender: FDA-Public Use
  Company Number: BUS-022005-005

PATIENT
  Age: 59 Year
  Sex: Male

DRUGS (6)
  1. BUSULFEX [Suspect]
     Indication: MULTIPLE MYELOMA
     Dosage: 264MG/DAY (66MG/DOSE X 4 TIMES)-IV
     Route: 042
     Dates: start: 20031108, end: 20031110
  2. FLUDARABINE PHOSPHATE [Concomitant]
  3. ATGAM [Concomitant]
  4. PHENYTOIN [Concomitant]
  5. ZOFRAN [Concomitant]
  6. ALLOPURINOL [Concomitant]

REACTIONS (4)
  - BONE MARROW TRANSPLANT [None]
  - CARDIAC FAILURE CONGESTIVE [None]
  - SEPSIS [None]
  - STAPHYLOCOCCAL BACTERAEMIA [None]
